FAERS Safety Report 5339404-1 (Version None)
Quarter: 2007Q2

REPORT INFORMATION
  Report Type: 
  Country: None (occurrence: None)
  Receive Date: 20070322
  Receipt Date: 20070116
  Transmission Date: 20071010
  Serious: Yes (Life-Threatening, Hospitalization)
  Sender: FDA-Public Use
  Company Number: 200613541BCC

PATIENT
  Age: 63 Year
  Sex: Male
  Weight: 87.5442 kg

DRUGS (1)
  1. ALEVE (CAPLET) [Suspect]
     Indication: VIRAL INFECTION
     Dosage: 440 MG, BID, ORAL
     Route: 048
     Dates: start: 20060728, end: 20060814

REACTIONS (8)
  - ASTHENIA [None]
  - FAECES DISCOLOURED [None]
  - GASTRIC DISORDER [None]
  - HAEMATEMESIS [None]
  - HAEMATOCHEZIA [None]
  - LOSS OF CONSCIOUSNESS [None]
  - SYNCOPE [None]
  - ULCER HAEMORRHAGE [None]
